FAERS Safety Report 6228928-0 (Version None)
Quarter: 2009Q2

REPORT INFORMATION
  Report Type: 
  Country: None (occurrence: None)
  Receive Date: 20090615
  Receipt Date: 20090611
  Transmission Date: 20091009
  Serious: Yes (Hospitalization)
  Sender: FDA-Public Use
  Company Number: FR-BRISTOL-MYERS SQUIBB COMPANY-14659148

PATIENT
  Age: 6 Decade
  Sex: Male

DRUGS (1)
  1. ABILIFY [Suspect]

REACTIONS (1)
  - PULMONARY EMBOLISM [None]
